FAERS Safety Report 5957749-9 (Version None)
Quarter: 2008Q4

REPORT INFORMATION
  Report Type: 
  Country: None (occurrence: None)
  Receive Date: 20081117
  Receipt Date: 20081110
  Transmission Date: 20090506
  Serious: Yes (Hospitalization)
  Sender: FDA-Public Use
  Company Number: 036555

PATIENT
  Age: 73 Year
  Sex: Female

DRUGS (14)
  1. METHOTREXATE [Suspect]
     Dosage: 15 MG, 1/WEEK, ORAL
     Route: 048
     Dates: start: 20010801, end: 20060401
  2. ENBREL [Suspect]
     Indication: RHEUMATOID ARTHRITIS
     Dosage: 25 MG, 1/WEEK, SUBCUTANEOUS
     Route: 058
     Dates: start: 20021101, end: 20050215
  3. PREDNISONE [Suspect]
     Dosage: 20 MG, QD, ORAL
     Route: 048
     Dates: start: 19960101, end: 19960101
  4. TERIPARATIDE (TERIPARATIDE) [Concomitant]
  5. OMPEPRAZOLE (OMEPRAZOLE) [Concomitant]
  6. MESALAMINE [Concomitant]
  7. FOLIC ACID [Concomitant]
  8. GALENTIC /CALCIUM [Concomitant]
  9. RETINOL (RETINOL) [Concomitant]
  10. CARISOPRODOL [Concomitant]
  11. XALATAN [Concomitant]
  12. MULTIVITAMINS (ERGOCALCIFEROL, PANTHENOL, NICOTINAMIDE, RIBOFLAVI, THI [Concomitant]
  13. LOSARTAN POTASSIUM HYDROCHLORIDE [Concomitant]
  14. ASCORBIC ACID [Concomitant]

REACTIONS (2)
  - CHRONIC OBSTRUCTIVE PULMONARY DISEASE [None]
  - PNEUMONIA [None]
